FAERS Safety Report 10885618 (Version 2)
Quarter: 2015Q1

REPORT INFORMATION
  Report Type: Spontaneous
  Country: US (occurrence: US)
  Receive Date: 20150304
  Receipt Date: 20150312
  Transmission Date: 20150721
  Serious: Yes (Hospitalization, Other)
  Sender: FDA-Public Use
  Company Number: US-PFIZER INC-2015077182

PATIENT
  Age: 53 Year
  Sex: Female
  Weight: 53 kg

DRUGS (1)
  1. CHANTIX [Suspect]
     Active Substance: VARENICLINE TARTRATE
     Indication: SMOKING CESSATION THERAPY
     Dosage: UNK, 2X/DAY
     Dates: start: 20150101, end: 20150116

REACTIONS (14)
  - Hyponatraemia [Unknown]
  - Vomiting [Unknown]
  - Seizure [Unknown]
  - Weight decreased [Unknown]
  - Decreased appetite [Unknown]
  - Depression [Unknown]
  - Memory impairment [Unknown]
  - Influenza like illness [Unknown]
  - Eating disorder [Unknown]
  - Pneumonia [Unknown]
  - Lung disorder [Not Recovered/Not Resolved]
  - Abasia [Unknown]
  - Musculoskeletal stiffness [Unknown]
  - Impaired work ability [Not Recovered/Not Resolved]

NARRATIVE: CASE EVENT DATE: 2015
